FAERS Safety Report 9909546 (Version 4)
Quarter: 2014Q3

REPORT INFORMATION
  Report Type: Spontaneous
  Country: US (occurrence: US)
  Receive Date: 20140219
  Receipt Date: 20140819
  Transmission Date: 20150326
  Serious: Yes (Hospitalization, Disabling)
  Sender: FDA-Public Use
  Company Number: US-BAYER-2014-025165

PATIENT
  Age: 31 Year
  Sex: Female
  Weight: 77.98 kg

DRUGS (1)
  1. MIRENA [Suspect]
     Active Substance: LEVONORGESTREL
     Indication: CONTRACEPTION
     Dosage: 20 MCG/24HR, CONT
     Route: 015
     Dates: start: 200712, end: 20080312

REACTIONS (8)
  - Injury [None]
  - General physical health deterioration [None]
  - Anhedonia [None]
  - Anxiety [None]
  - Uterine perforation [None]
  - Pain [None]
  - Deformity [None]
  - Emotional distress [None]

NARRATIVE: CASE EVENT DATE: 200803
